FAERS Safety Report 8276081-4 (Version None)
Quarter: 2012Q2

REPORT INFORMATION
  Report Type: 
  Country: None (occurrence: None)
  Receive Date: 20120412
  Receipt Date: 20120330
  Transmission Date: 20120825
  Serious: Yes (Hospitalization)
  Sender: FDA-Public Use
  Company Number: CA-JNJFOC-20120400641

PATIENT
  Sex: Female
  Weight: 68.04 kg

DRUGS (1)
  1. REMICADE [Suspect]
     Indication: PSORIASIS
     Route: 042
     Dates: start: 20110101

REACTIONS (5)
  - HAEMORRHAGE [None]
  - LIMB TRAUMATIC AMPUTATION [None]
  - ROAD TRAFFIC ACCIDENT [None]
  - PHANTOM PAIN [None]
  - NECK INJURY [None]
